FAERS Safety Report 5919425-8 (Version None)
Quarter: 2008Q4

REPORT INFORMATION
  Report Type: 
  Country: None (occurrence: None)
  Receive Date: 20081015
  Receipt Date: 20081008
  Transmission Date: 20090506
  Serious: Yes (Other)
  Sender: FDA-Public Use
  Company Number: PHBS2008DE05985

PATIENT
  Age: 36 Year
  Sex: Male

DRUGS (3)
  1. CARBAMAZEPINE [Suspect]
     Indication: EPILEPSY
     Dosage: 1300 MG/DAY
     Route: 065
  2. VALPROATE SODIUM [Suspect]
     Indication: EPILEPSY
     Dosage: 3350 MG/DAY
     Route: 065
  3. PHENOBARBITAL TAB [Suspect]
     Indication: EPILEPSY
     Dosage: 100 MG/DAY
     Route: 065

REACTIONS (3)
  - DUPUYTREN'S CONTRACTURE [None]
  - FIBROMATOSIS [None]
  - NEURECTOMY [None]
